FAERS Safety Report 8363424-6 (Version None)
Quarter: 2012Q2

REPORT INFORMATION
  Report Type: 
  Country: None (occurrence: None)
  Receive Date: 20120516
  Receipt Date: 20120514
  Transmission Date: 20120825
  Serious: Yes (Other)
  Sender: FDA-Public Use
  Company Number: JP-PFIZER INC-2012117232

PATIENT
  Sex: Female

DRUGS (3)
  1. VOLTAREN - SLOW RELEASE ^CIBA-GEIGY^ [Concomitant]
     Dosage: UNK
  2. LYRICA [Suspect]
     Dosage: UNK
  3. MINOCYCLINE HYDROCHLORIDE [Concomitant]
     Dosage: UNK

REACTIONS (1)
  - RENAL IMPAIRMENT [None]
